FAERS Safety Report 8462390-2 (Version None)
Quarter: 2012Q2

REPORT INFORMATION
  Report Type: 
  Country: None (occurrence: None)
  Receive Date: 20120625
  Receipt Date: 20120618
  Transmission Date: 20120825
  Serious: Yes (Hospitalization)
  Sender: FDA-Public Use
  Company Number: US-BAYER-2012-061292

PATIENT
  Age: 48 Year
  Sex: Female
  Weight: 72 kg

DRUGS (9)
  1. DOXEPIN [Concomitant]
     Dosage: 20 MG, UNK
     Route: 048
     Dates: start: 20061005
  2. TOPAMAX [Concomitant]
     Dosage: 20 MG, UNK
     Route: 048
     Dates: start: 20061005
  3. TOPIRAMATE [Concomitant]
  4. YAZ [Suspect]
     Indication: MENORRHAGIA
  5. YASMIN [Suspect]
     Indication: MENORRHAGIA
  6. KETOPROFEN [Concomitant]
     Dosage: 50 MG, UNK
     Route: 048
     Dates: start: 20060809
  7. PROTONIX [Concomitant]
  8. DEPO-PROVERA [Concomitant]
     Dosage: 150 MG, UNK
     Route: 030
  9. YASMIN [Suspect]
     Indication: UTERINE LEIOMYOMA

REACTIONS (2)
  - DEEP VEIN THROMBOSIS [None]
  - PULMONARY EMBOLISM [None]
